FAERS Safety Report 11044896 (Version 1)
Quarter: 2015Q2

REPORT INFORMATION
  Report Type: Spontaneous
  Country: JP (occurrence: JP)
  Receive Date: 20150417
  Receipt Date: 20150417
  Transmission Date: 20150821
  Serious: Yes (Other)
  Sender: FDA-Public Use
  Company Number: JP-GLAXOSMITHKLINE-A1048285A

PATIENT
  Age: 5 Decade
  Sex: Male

DRUGS (3)
  1. NICORETTE [Suspect]
     Active Substance: NICOTINE
     Route: 048
  2. NICORETTE [Suspect]
     Active Substance: NICOTINE
     Route: 048
  3. NICORETTE [Suspect]
     Active Substance: NICOTINE
     Indication: SMOKING CESSATION THERAPY
     Route: 048
     Dates: start: 201212, end: 20131021

REACTIONS (1)
  - Mental impairment [Not Recovered/Not Resolved]

NARRATIVE: CASE EVENT DATE: 201310
